FAERS Safety Report 8458087-5 (Version None)
Quarter: 2012Q2

REPORT INFORMATION
  Report Type: 
  Country: None (occurrence: None)
  Receive Date: 20120622
  Receipt Date: 20120608
  Transmission Date: 20120825
  Serious: Yes (Life-Threatening, Hospitalization, Disabling)
  Sender: FDA-Public Use
  Company Number: FI-UCBSA-059344

PATIENT
  Age: 62 Year
  Sex: Female

DRUGS (4)
  1. ORLOC [Concomitant]
     Indication: HYPERTONIA
     Dosage: 5 MG, DAILY DOSE: 5 MG
     Route: 048
  2. PREDNISONE TAB [Concomitant]
     Indication: RHEUMATOID ARTHRITIS
     Dosage: 5 MG, DAILY DOSE: 2.5 MG
     Route: 048
  3. CIMZIA [Suspect]
     Indication: RHEUMATOID ARTHRITIS
     Dosage: 200 MG
     Route: 058
     Dates: start: 20091101, end: 20100101
  4. DIFORMIN RETARD [Concomitant]
     Indication: DIABETES MELLITUS
     Dosage: 500 MG, DAILY DOSE: 1000 MG
     Route: 048

REACTIONS (2)
  - DRUG INEFFECTIVE [None]
  - HAEMATURIA [None]
